FAERS Safety Report 10056160 (Version 1)
Quarter: 2014Q2

REPORT INFORMATION
  Report Type: Spontaneous
  Country: US (occurrence: US)
  Receive Date: 20140403
  Receipt Date: 20140403
  Transmission Date: 20141212
  Serious: No
  Sender: FDA-Public Use
  Company Number: US-PFIZER INC-2014094100

PATIENT
  Age: 62 Year
  Sex: Female
  Weight: 72.56 kg

DRUGS (5)
  1. LYRICA [Suspect]
     Indication: ARTHRITIS
     Dosage: 75 MG, 2X/DAY
  2. LEVOXYL [Concomitant]
     Dosage: UNK
  3. SYNTHROID [Concomitant]
     Dosage: 200 UG, DAILY
  4. LASIX [Concomitant]
     Indication: FLUID RETENTION
     Dosage: 40 MG, DAILY
  5. POTASSIUM CHLORIDE [Concomitant]
     Dosage: 10 MG, UNK

REACTIONS (1)
  - Drug ineffective [Not Recovered/Not Resolved]
